FAERS Safety Report 5252056-4 (Version None)
Quarter: 2007Q1

REPORT INFORMATION
  Report Type: 
  Country: None (occurrence: None)
  Receive Date: 20070227
  Receipt Date: 20070209
  Transmission Date: 20070707
  Serious: Yes (Death)
  Sender: FDA-Public Use
  Company Number: 236933

PATIENT
  Age: 41 Year
  Sex: Female
  Weight: 40 kg

DRUGS (5)
  1. AVASTIN [Suspect]
     Indication: BREAST CANCER
     Dosage: 10 MG/KG, QS2, INTRAVENOUS
     Route: 042
     Dates: start: 20061213
  2. PACLITAXEL [Suspect]
     Indication: BREAST CANCER
     Dosage: 90 MG/M2, UNK, INTRAVENOUS
     Route: 042
     Dates: start: 20061213
  3. MORPHINE SULFATE INJ [Concomitant]
  4. MORPHINE SULFATE [Concomitant]
  5. ZOMETA [Concomitant]

REACTIONS (9)
  - C-REACTIVE PROTEIN INCREASED [None]
  - COMA [None]
  - CYANOSIS [None]
  - HAEMOGLOBIN DECREASED [None]
  - HYPOTENSION [None]
  - HYPOVOLAEMIA [None]
  - PLATELET COUNT DECREASED [None]
  - SHOCK [None]
  - WHITE BLOOD CELL COUNT DECREASED [None]
